FAERS Safety Report 22153430 (Version 3)
Quarter: 2023Q2

REPORT INFORMATION
  Report Type: Spontaneous
  Country: US (occurrence: US)
  Receive Date: 20230329
  Receipt Date: 20230413
  Transmission Date: 20230721
  Serious: No
  Sender: FDA-Public Use
  Company Number: US-AMGEN-USASP2023052946

PATIENT
  Age: 69 Year
  Sex: Male
  Weight: 102.04 kg

DRUGS (1)
  1. OTEZLA [Suspect]
     Active Substance: APREMILAST
     Indication: Psoriasis
     Dosage: UNK
     Route: 065

REACTIONS (4)
  - Psoriasis [Recovered/Resolved]
  - Rash erythematous [Unknown]
  - Rash pruritic [Unknown]
  - Rash papular [Unknown]
